FAERS Safety Report 21503737 (Version 16)
Quarter: 2024Q3

REPORT INFORMATION
  Report Type: Report from Study
  Country: EG (occurrence: EG)
  Receive Date: 20221025
  Receipt Date: 20240926
  Transmission Date: 20241016
  Serious: Yes (Disabling, Other)
  Sender: NOVARTIS
  Company Number: EG-NOVARTISPH-NVSC2022EG237300

PATIENT
  Age: 42 Year
  Sex: Female

DRUGS (10)
  1. AFINITOR [Suspect]
     Active Substance: EVEROLIMUS
     Indication: Metastases to liver
     Dosage: 2 DOSAGE FORM, QD
     Route: 065
     Dates: start: 20221005
  2. AFINITOR [Suspect]
     Active Substance: EVEROLIMUS
     Dosage: 2 DOSAGE FORM, BID
     Route: 048
     Dates: start: 20221014
  3. AFINITOR [Suspect]
     Active Substance: EVEROLIMUS
     Dosage: 2 DOSAGE FORM, QD
     Route: 048
  4. AFINITOR [Suspect]
     Active Substance: EVEROLIMUS
     Dosage: 2 DOSAGE FORM, QD
     Route: 048
     Dates: start: 202210
  5. AFINITOR [Suspect]
     Active Substance: EVEROLIMUS
     Dosage: 5 MG, BID (IN OCT, 2 TABLETS PER DAY)
     Route: 048
  6. AFINITOR [Suspect]
     Active Substance: EVEROLIMUS
     Dosage: 2 DOSAGE FORM, QD, (LOT NO: 10038887623565)
     Route: 048
     Dates: start: 202210
  7. AFINITOR [Suspect]
     Active Substance: EVEROLIMUS
     Dosage: UNK
     Route: 065
  8. AFINITOR [Suspect]
     Active Substance: EVEROLIMUS
     Dosage: 2 DOSAGE FORM, QD
     Route: 048
     Dates: start: 202210
  9. XANAX [Concomitant]
     Active Substance: ALPRAZOLAM
     Indication: Sleep disorder
     Dosage: 1 DOSAGE FORM, QD
     Route: 048
     Dates: start: 20221001, end: 20221017
  10. DIFLUCAN [Concomitant]
     Active Substance: FLUCONAZOLE
     Indication: Fungal infection
     Dosage: UNK UNK, BIW
     Route: 065
     Dates: start: 20230624

REACTIONS (67)
  - Feeling of body temperature change [Not Recovered/Not Resolved]
  - Pollakiuria [Not Recovered/Not Resolved]
  - Face oedema [Not Recovered/Not Resolved]
  - Polyuria [Not Recovered/Not Resolved]
  - Sleep disorder [Not Recovered/Not Resolved]
  - Heavy menstrual bleeding [Not Recovered/Not Resolved]
  - Back pain [Not Recovered/Not Resolved]
  - Skin discolouration [Not Recovered/Not Resolved]
  - Uterine pain [Not Recovered/Not Resolved]
  - Pain [Not Recovered/Not Resolved]
  - Eye pain [Not Recovered/Not Resolved]
  - Ocular discomfort [Not Recovered/Not Resolved]
  - Dizziness [Not Recovered/Not Resolved]
  - Blood loss anaemia [Not Recovered/Not Resolved]
  - Uterine haemorrhage [Not Recovered/Not Resolved]
  - Diabetes mellitus [Not Recovered/Not Resolved]
  - Mouth ulceration [Not Recovered/Not Resolved]
  - Blood pressure increased [Recovered/Resolved]
  - Hepatic cancer [Not Recovered/Not Resolved]
  - Malignant neoplasm progression [Not Recovered/Not Resolved]
  - Hypotension [Unknown]
  - Loss of consciousness [Unknown]
  - Dyspnoea [Unknown]
  - Speech disorder [Unknown]
  - Gingival disorder [Unknown]
  - Purulence [Recovering/Resolving]
  - Cystitis [Recovering/Resolving]
  - Movement disorder [Recovering/Resolving]
  - Urinary retention [Recovering/Resolving]
  - Bladder pain [Recovering/Resolving]
  - Burning sensation [Recovering/Resolving]
  - Ovarian haemorrhage [Unknown]
  - Ovarian cyst [Unknown]
  - Amenorrhoea [Unknown]
  - Iron deficiency anaemia [Unknown]
  - Pyrexia [Recovered/Resolved]
  - Headache [Recovered/Resolved]
  - Pyrexia [Recovered/Resolved]
  - Headache [Recovered/Resolved]
  - Hallucination [Unknown]
  - Product storage error [Not Recovered/Not Resolved]
  - Pyrexia [Recovered/Resolved]
  - Panic attack [Unknown]
  - Renal disorder [Not Recovered/Not Resolved]
  - Fatigue [Not Recovered/Not Resolved]
  - Bladder disorder [Not Recovered/Not Resolved]
  - Dental caries [Unknown]
  - Abdominal pain upper [Not Recovered/Not Resolved]
  - Tooth fracture [Unknown]
  - Renal colic [Not Recovered/Not Resolved]
  - Menstrual disorder [Unknown]
  - Visual impairment [Unknown]
  - Nausea [Unknown]
  - Hypersensitivity [Recovered/Resolved]
  - Pruritus [Recovered/Resolved]
  - Hepatic pain [Unknown]
  - Tumour marker increased [Not Recovered/Not Resolved]
  - Stress [Unknown]
  - Renal pain [Unknown]
  - Illness [Unknown]
  - Blood glucose increased [Unknown]
  - Hepatic lesion [Unknown]
  - Nervousness [Unknown]
  - Cystitis noninfective [Not Recovered/Not Resolved]
  - Product supply issue [Unknown]
  - Product use in unapproved indication [Unknown]
  - Drug ineffective [Unknown]

NARRATIVE: CASE EVENT DATE: 20220501
